FAERS Safety Report 9378188 (Version 1)
Quarter: 2013Q3

REPORT INFORMATION
  Report Type: Spontaneous
  Country: US (occurrence: US)
  Receive Date: 20130701
  Receipt Date: 20130701
  Transmission Date: 20140515
  Serious: Yes (Other)
  Sender: FDA-Public Use
  Company Number: US-PFIZER INC-2013193006

PATIENT
  Age: 42 Year
  Sex: Female
  Weight: 122 kg

DRUGS (5)
  1. PRISTIQ [Suspect]
     Indication: HOT FLUSH
     Dosage: 150 MG, DAILY
     Dates: start: 201301, end: 2013
  2. PRISTIQ [Suspect]
     Dosage: 200 MG, DAILY
     Dates: start: 2013
  3. TAMOXIFEN CITRATE [Suspect]
     Indication: INVASIVE DUCTAL BREAST CARCINOMA
     Dosage: 20 MG, DAILY
     Dates: start: 201102
  4. DULERA [Concomitant]
     Indication: ASTHMA
     Dosage: (^300MCG^, TWO PUFFS), 2X/DAY
  5. GABAPENTIN [Concomitant]
     Indication: SCIATICA
     Dosage: 600 MG, 3X/DAY

REACTIONS (6)
  - Uterine disorder [Unknown]
  - Off label use [Unknown]
  - Menstrual disorder [Unknown]
  - Premature menopause [Unknown]
  - Pyrexia [Unknown]
  - Feeling abnormal [Unknown]
